FAERS Safety Report 26154231 (Version 1)
Quarter: 2025Q4

REPORT INFORMATION
  Report Type: Spontaneous
  Country: US (occurrence: US)
  Receive Date: 20251215
  Receipt Date: 20251215
  Transmission Date: 20260118
  Serious: Yes (Other)
  Sender: TOLMAR
  Company Number: US-Tolmar-TLM-2025-09353

PATIENT
  Age: 45 Year

DRUGS (1)
  1. TESTOSTERONE UNDECANOATE [Suspect]
     Active Substance: TESTOSTERONE UNDECANOATE
     Indication: Product used for unknown indication
     Route: 065
     Dates: start: 2011

REACTIONS (3)
  - Retinal artery occlusion [Unknown]
  - Polycythaemia [Unknown]
  - Drug abuse [Unknown]
